FAERS Safety Report 5509097-9 (Version None)
Quarter: 2007Q4

REPORT INFORMATION
  Report Type: 
  Country: None (occurrence: None)
  Receive Date: 20071026
  Receipt Date: 20070711
  Transmission Date: 20080405
  Serious: Yes (Hospitalization)
  Sender: FDA-Public Use
  Company Number: CLOF-10598

PATIENT
  Age: 62 Year
  Sex: Female
  Weight: 42.3 kg

DRUGS (4)
  1. CLOFARABINE. MFR: GENZYME [Suspect]
     Indication: NON-HODGKIN'S LYMPHOMA
     Dosage: 4 MG/M2 QD X 3 IV
     Route: 042
     Dates: start: 20060717, end: 20060719
  2. LYRICA [Concomitant]
  3. ACYCLOVIR [Concomitant]
  4. BACTRIM DS [Concomitant]

REACTIONS (2)
  - CHILLS [None]
  - PYREXIA [None]
